FAERS Safety Report 6278304-X (Version None)
Quarter: 2009Q3

REPORT INFORMATION
  Report Type: 
  Country: None (occurrence: None)
  Receive Date: 20090722
  Receipt Date: 20090715
  Transmission Date: 20100115
  Serious: Yes (Hospitalization)
  Sender: FDA-Public Use
  Company Number: FR-B.I. PHARMACEUTICALS,INC./RIDGEFIELD-2009-FF-00508FF

PATIENT
  Sex: Female

DRUGS (7)
  1. ASASANTINE LP [Suspect]
     Dosage: 200 MG/25 MG X 2 DAILY
     Route: 048
     Dates: end: 20090618
  2. METHOTREXATE [Suspect]
     Indication: RHEUMATOID ARTHRITIS
     Dosage: 7.5 MG ONCE A WEEK
     Route: 048
     Dates: start: 20080101, end: 20090618
  3. VASTAREL [Concomitant]
     Dosage: 35 MG
     Route: 048
     Dates: end: 20090618
  4. FENOFIBRATE [Concomitant]
     Indication: HYPERCHOLESTEROLAEMIA
     Route: 048
     Dates: end: 20090618
  5. DIANTALVIC [Concomitant]
     Indication: PAIN
     Route: 048
     Dates: end: 20090618
  6. ISOPTIN [Concomitant]
     Dosage: 120 MG
  7. COZAAR [Concomitant]
     Dosage: 100 MG

REACTIONS (1)
  - PANCYTOPENIA [None]
